FAERS Safety Report 16711265 (Version 1)
Quarter: 2019Q3

REPORT INFORMATION
  Report Type: Spontaneous
  Country: US (occurrence: US)
  Receive Date: 20190816
  Receipt Date: 20190816
  Transmission Date: 20191004
  Serious: Yes (Hospitalization)
  Sender: FDA-Public Use
  Company Number: US-TASMAN PHARMA, INC.-2019TSM00083

PATIENT
  Age: 26 Year
  Sex: Male

DRUGS (4)
  1. TRAZODONE [Concomitant]
     Active Substance: TRAZODONE HYDROCHLORIDE
     Dosage: 50 MG, 1X/DAY (AT BEDTIME)
     Route: 065
  2. LITHIUM. [Concomitant]
     Active Substance: LITHIUM
     Dosage: 450 MG, 2X/DAY
     Route: 065
  3. CLOZAPINE. [Suspect]
     Active Substance: CLOZAPINE
     Indication: SCHIZOAFFECTIVE DISORDER
     Dosage: 75 MG, 1X/DAY (AT BEDTIME)
     Route: 065
  4. RISPERIDONE. [Concomitant]
     Active Substance: RISPERIDONE
     Dosage: 2 MG, 2X/DAY
     Route: 065

REACTIONS (4)
  - Cardiac failure congestive [Recovered/Resolved]
  - Acute respiratory failure [Recovered/Resolved]
  - Myocarditis [Recovered/Resolved]
  - Left ventricular dysfunction [Recovered/Resolved]
